FAERS Safety Report 12423808 (Version 1)
Quarter: 2016Q2

REPORT INFORMATION
  Report Type: Spontaneous
  Country: None (occurrence: None)
  Receive Date: 20160531
  Receipt Date: 20160531
  Transmission Date: 20160815
  Serious: No
  Sender: FDA-Public Use
  Company Number: None

PATIENT
  Age: 60 Year
  Sex: Male
  Weight: 81.65 kg

DRUGS (5)
  1. STENOLOL [Concomitant]
  2. CLONIDINE. [Suspect]
     Active Substance: CLONIDINE
     Indication: HYPERTENSION
     Route: 048
  3. AMLODIPINE [Concomitant]
     Active Substance: AMLODIPINE BESYLATE
  4. ENALIPRIL [Concomitant]
  5. HYDROCHLOROTHIZIDE-TRIAMETERENE [Concomitant]

REACTIONS (2)
  - Fluid retention [None]
  - Oedema [None]

NARRATIVE: CASE EVENT DATE: 20160527
